FAERS Safety Report 9766635 (Version 1)
Quarter: 2013Q4

REPORT INFORMATION
  Report Type: Spontaneous
  Country: US (occurrence: US)
  Receive Date: 20131217
  Receipt Date: 20131217
  Transmission Date: 20140711
  Serious: No
  Sender: FDA-Public Use
  Company Number: US-BIOGENIDEC-2013BI118234

PATIENT
  Age: 56 Year
  Sex: Female

DRUGS (19)
  1. TECFIDERA [Suspect]
     Indication: MULTIPLE SCLEROSIS
     Route: 048
  2. ADVIL [Concomitant]
  3. AFRIN [Concomitant]
  4. ALAVERT [Concomitant]
  5. CALCIUM CARBONATE [Concomitant]
  6. CALTRATE + D [Concomitant]
  7. CENTRUM [Concomitant]
  8. DRISTAN [Concomitant]
  9. ELESTAT [Concomitant]
  10. FLONASE [Concomitant]
  11. GABAPENTIN [Concomitant]
  12. GUAIFENESIN [Concomitant]
  13. LORATADINE [Concomitant]
  14. MAGNESIUM [Concomitant]
  15. PSEUDOEPHEDRINE [Concomitant]
  16. RELPAX [Concomitant]
  17. SONATA [Concomitant]
  18. SPIRONOLACTONE [Concomitant]
  19. TOPAMAX [Concomitant]

REACTIONS (2)
  - Migraine [Recovered/Resolved]
  - Nausea [Recovered/Resolved]
